FAERS Safety Report 8628597 (Version 25)
Quarter: 2018Q2

REPORT INFORMATION
  Report Type: Report from Study
  Country: CA (occurrence: CA)
  Receive Date: 20120621
  Receipt Date: 20180530
  Transmission Date: 20180711
  Serious: Yes (Hospitalization, Other)
  Sender: FDA-Public Use
  Company Number: CA-ROCHE-1078543

PATIENT
  Age: 55 Year
  Sex: Female
  Weight: 57 kg

DRUGS (11)
  1. ACTEMRA [Suspect]
     Active Substance: TOCILIZUMAB
     Route: 042
     Dates: start: 20150806
  2. ACTEMRA [Suspect]
     Active Substance: TOCILIZUMAB
     Route: 042
     Dates: start: 201204
  3. ACTEMRA [Suspect]
     Active Substance: TOCILIZUMAB
     Route: 042
     Dates: start: 20130306
  4. PLAQUENIL [Concomitant]
     Active Substance: HYDROXYCHLOROQUINE SULFATE
     Route: 048
     Dates: start: 2002
  5. ACTEMRA [Suspect]
     Active Substance: TOCILIZUMAB
     Route: 042
     Dates: start: 20140828
  6. CORTISONE [Concomitant]
     Active Substance: CORTISONE\HYDROCORTISONE
  7. LYRICA [Concomitant]
     Active Substance: PREGABALIN
     Route: 048
     Dates: start: 201204
  8. OXYCONTIN [Suspect]
     Active Substance: OXYCODONE HYDROCHLORIDE
     Indication: PRODUCT USED FOR UNKNOWN INDICATION
     Route: 048
     Dates: start: 20120610, end: 20120627
  9. METHOTREXATE. [Concomitant]
     Active Substance: METHOTREXATE
     Route: 065
     Dates: start: 2002
  10. ACTEMRA [Suspect]
     Active Substance: TOCILIZUMAB
     Indication: RHEUMATOID ARTHRITIS
     Route: 042
     Dates: start: 20111130, end: 20170330
  11. ACTEMRA [Suspect]
     Active Substance: TOCILIZUMAB
     Route: 042
     Dates: start: 20120516

REACTIONS (34)
  - Teeth brittle [Not Recovered/Not Resolved]
  - Nasopharyngitis [Unknown]
  - Pain [Unknown]
  - Chronic obstructive pulmonary disease [Recovering/Resolving]
  - Transient ischaemic attack [Unknown]
  - Arthralgia [Not Recovered/Not Resolved]
  - Weight decreased [Unknown]
  - Ataxia [Unknown]
  - Herpes zoster [Not Recovered/Not Resolved]
  - Gait disturbance [Unknown]
  - Pain in extremity [Not Recovered/Not Resolved]
  - Pneumonia [Recovering/Resolving]
  - Joint swelling [Unknown]
  - Cough [Not Recovered/Not Resolved]
  - Heart rate increased [Unknown]
  - Tooth extraction [Unknown]
  - Dental caries [Unknown]
  - Arthritis [Unknown]
  - Weight increased [Not Recovered/Not Resolved]
  - Lung infection [Not Recovered/Not Resolved]
  - Dysarthria [Unknown]
  - Arthropathy [Unknown]
  - Fatigue [Not Recovered/Not Resolved]
  - Weight decreased [Unknown]
  - Lung infection [Not Recovered/Not Resolved]
  - Asthenia [Not Recovered/Not Resolved]
  - Rhinitis [Not Recovered/Not Resolved]
  - Arthritis infective [Recovered/Resolved]
  - Osteoarthritis [Recovering/Resolving]
  - Hypotension [Unknown]
  - Neutropenia [Unknown]
  - Oxygen saturation decreased [Unknown]
  - Pulmonary congestion [Not Recovered/Not Resolved]
  - Blood pressure increased [Unknown]

NARRATIVE: CASE EVENT DATE: 20120609
